FAERS Safety Report 9937095 (Version 2)
Quarter: 2014Q1

REPORT INFORMATION
  Report Type: Report from Study
  Country: CO (occurrence: CO)
  Receive Date: 20140301
  Receipt Date: 20140304
  Transmission Date: 20141002
  Serious: Yes (Life-Threatening, Hospitalization)
  Sender: FDA-Public Use
  Company Number: CO-ROCHE-1357978

PATIENT
  Age: 47 Year
  Sex: Male
  Weight: 67 kg

DRUGS (5)
  1. LUCENTIS [Suspect]
     Indication: RETINAL DETACHMENT
     Route: 050
  2. LUCENTIS [Suspect]
     Dosage: LAST DOSE PRIOR TO SAE
     Route: 050
     Dates: start: 201311, end: 2013
  3. METFORMIN [Concomitant]
     Route: 065
  4. INSULIN [Concomitant]
  5. WARFARIN [Concomitant]

REACTIONS (4)
  - Pulmonary thrombosis [Recovering/Resolving]
  - Respiratory arrest [Recovering/Resolving]
  - Arteriosclerosis [Recovering/Resolving]
  - Cardio-respiratory arrest [Unknown]
